FAERS Safety Report 6682607-4 (Version None)
Quarter: 2010Q2

REPORT INFORMATION
  Report Type: 
  Country: None (occurrence: None)
  Receive Date: 20100415
  Receipt Date: 20100314
  Transmission Date: 20101027
  Serious: Yes (Hospitalization)
  Sender: FDA-Public Use
  Company Number: PHHO2009DE06520

PATIENT
  Sex: Female
  Weight: 57.3 kg

DRUGS (1)
  1. EXELON [Suspect]
     Indication: DEMENTIA
     Dosage: 18 MG
     Route: 062
     Dates: start: 20090416, end: 20090515

REACTIONS (2)
  - CONFUSIONAL STATE [None]
  - DISORIENTATION [None]
